FAERS Safety Report 9049036 (Version 3)
Quarter: 2013Q1

REPORT INFORMATION
  Report Type: Spontaneous
  Country: JP (occurrence: None)
  Receive Date: 20130117
  Receipt Date: 20130208
  Transmission Date: 20140127
  Serious: Yes (Hospitalization)
  Sender: FDA-Public Use
  Company Number: JP-010614

PATIENT
  Age: 78 Year
  Sex: Male
  Weight: 43 kg

DRUGS (6)
  1. DEGARELIX (GONAX) [Suspect]
     Indication: PROSTATE CANCER
     Route: 058
     Dates: start: 20121206, end: 20121206
  2. GASMOTIN [Suspect]
     Indication: GASTROENTERITIS
     Route: 048
     Dates: start: 20121213, end: 20130107
  3. RANMARK [Suspect]
     Indication: PROSTATE CANCER
     Route: 058
     Dates: start: 20121219, end: 20121219
  4. ALFACALCIDOL [Suspect]
     Indication: HYPOCALCAEMIA
     Route: 048
     Dates: start: 20121213, end: 20130107
  5. BICALUTAMIDE [Suspect]
     Indication: PROSTATE CANCER
     Dates: start: 20121204, end: 20130107
  6. ELSPRI CA [Concomitant]

REACTIONS (3)
  - Blood creatine phosphokinase increased [None]
  - Blood lactate dehydrogenase increased [None]
  - Rhabdomyolysis [None]
